FAERS Safety Report 17820356 (Version 1)
Quarter: 2020Q2

REPORT INFORMATION
  Report Type: Spontaneous
  Country: CA (occurrence: CA)
  Receive Date: 20200525
  Receipt Date: 20200525
  Transmission Date: 20200714
  Serious: Yes (Hospitalization, Other)
  Sender: FDA-Public Use
  Company Number: CA-AMGEN-CANSP2020081062

PATIENT
  Age: 48 Year
  Sex: Female
  Weight: 62 kg

DRUGS (4)
  1. NEULASTA [Suspect]
     Active Substance: PEGFILGRASTIM
     Indication: PROPHYLAXIS
     Dosage: 6 MILLIGRAM, (TOTAL)
     Route: 058
  2. FLUOROURACIL. [Suspect]
     Active Substance: FLUOROURACIL
     Indication: BREAST CANCER FEMALE
     Dosage: 500 MILLIGRAM/SQ. METER, Q3WK
     Route: 042
  3. EPIRUBICIN HYDROCHLORIDE. [Suspect]
     Active Substance: EPIRUBICIN HYDROCHLORIDE
     Indication: BREAST CANCER FEMALE
     Dosage: 100 MILLIGRAM/SQ. METER, Q3WK
     Route: 042
  4. CYCLOPHOSPHAMIDE. [Suspect]
     Active Substance: CYCLOPHOSPHAMIDE
     Indication: BREAST CANCER FEMALE
     Dosage: 500 MILLIGRAM/SQ. METER, Q3WK
     Route: 042

REACTIONS (2)
  - Infection [Recovered/Resolved]
  - Febrile neutropenia [Recovered/Resolved]
